FAERS Safety Report 6738882-0 (Version None)
Quarter: 2010Q2

REPORT INFORMATION
  Report Type: 
  Country: None (occurrence: None)
  Receive Date: 20100520
  Receipt Date: 20100511
  Transmission Date: 20101027
  Serious: Yes (Other)
  Sender: FDA-Public Use
  Company Number: UKP10000058

PATIENT
  Age: 68 Year
  Sex: Male
  Weight: 59 kg

DRUGS (26)
  1. ASACOL [Suspect]
     Indication: CROHN'S DISEASE
     Dosage: 2/DAY, ORAL
     Route: 048
     Dates: start: 20070924, end: 20100305
  2. A/H1N1 INFLUENZA PANDEMIC VACCINE (A/H1N1 INFLUENZA PANDEMIC VACCINE) [Suspect]
  3. ADCAL-D3 (CALCIUM CARBONATE, COLECALCIFEROL) [Concomitant]
  4. ATORVASTATIN CALCIUM [Concomitant]
  5. BETAMETHASONE VALERATE [Concomitant]
  6. CARVEDILOL [Concomitant]
  7. CIMETIDINE [Concomitant]
  8. CLOPIDOGREL [Concomitant]
  9. CODEINE PHOSPHATE (CODEINE PHOSPHATE) [Concomitant]
  10. DIORALYTE (GLUCOSE, POTASSIUM CHLORIDE, SODIUM BICARBONATE, SODIUM CHL [Concomitant]
  11. DOMPERIDONE (DOMPERIDONE) [Concomitant]
  12. FUROSEMIDE [Concomitant]
  13. ISOSORBIDE MONONITRATE [Concomitant]
  14. LOPERAMIDE HYDROCHLORIDE [Concomitant]
  15. MAGNESIUM GLYCEROPHOSPHATE (MAGNESIUM GLYCEROPHOSPHATE) [Concomitant]
  16. NICORANDIL (NICORANDIL) [Concomitant]
  17. OILATUM PLUS (BENZAKONIUM CHLORIDE, LIGHT LIQUID PARAFFIN, TRICLOSAN) [Concomitant]
  18. OMACOR (DOCOSAHEXANOIC ACID, EICOSAPENAENOIC ACID) [Concomitant]
  19. ONDANSETRON HYDROCHLORIDE [Concomitant]
  20. PANTOPRAZOLE SODIUM [Concomitant]
  21. PREDFOAM (PREDNISOLONE SODIUM SULFOBENZOATE) [Concomitant]
  22. RAMIPRIL [Concomitant]
  23. POTASSIUM CHLORIDE [Concomitant]
  24. SUCRALFATE [Concomitant]
  25. PROCAL (SODIUM FLUORIDE) [Concomitant]
  26. ALL OTHER NON-THERAPEUTIC PRODUCTS [Concomitant]

REACTIONS (3)
  - DRUG INTERACTION [None]
  - HAEMOLYSIS [None]
  - INFLUENZA [None]
